FAERS Safety Report 6608291-3 (Version None)
Quarter: 2010Q1

REPORT INFORMATION
  Report Type: 
  Country: None (occurrence: None)
  Receive Date: 20100301
  Receipt Date: 20100212
  Transmission Date: 20100710
  Serious: Yes (Death)
  Sender: FDA-Public Use
  Company Number: US-ROCHE-687570

PATIENT
  Sex: Male
  Weight: 81.2 kg

DRUGS (1)
  1. CAPECITABINE [Suspect]
     Indication: COLORECTAL CANCER
     Dosage: STRENGTH: 500
     Route: 048
     Dates: start: 20091210, end: 20100114

REACTIONS (1)
  - DEATH [None]
